FAERS Safety Report 4425507-2 (Version None)
Quarter: 2004Q3

REPORT INFORMATION
  Report Type: 
  Country: None (occurrence: None)
  Receive Date: 20040809
  Receipt Date: 20040719
  Transmission Date: 20050211
  Serious: Yes (Disabling)
  Sender: FDA-Public Use
  Company Number: M04-341-142

PATIENT
  Age: 76 Year
  Sex: Male
  Weight: 68.9 kg

DRUGS (6)
  1. VELCADE [Suspect]
     Indication: MULTIPLE MYELOMA
     Dosage: 2.5 MG, IV BOLUS
     Route: 040
     Dates: start: 20040101
  2. DEXAMETHASONE [Concomitant]
  3. ALLOPURINOL [Concomitant]
  4. MULTIVITAMIN [Concomitant]
  5. VITAMIN B COMPLEX CAP [Concomitant]
  6. VITAMIN C [Concomitant]

REACTIONS (3)
  - DECREASED APPETITE [None]
  - STOMATITIS [None]
  - WEIGHT DECREASED [None]
